FAERS Safety Report 21341020 (Version 2)
Quarter: 2022Q4

REPORT INFORMATION
  Report Type: Spontaneous
  Country: US (occurrence: US)
  Receive Date: 20220916
  Receipt Date: 20221011
  Transmission Date: 20230113
  Serious: No
  Sender: FDA-Public Use
  Company Number: US-ALK-ABELLO A/S-2022AA002737

PATIENT

DRUGS (23)
  1. QUERCUS ALBA POLLEN [Suspect]
     Active Substance: QUERCUS ALBA POLLEN
     Indication: Product used for unknown indication
     Dosage: UNK
     Dates: start: 20220214
  2. JUNIPERUS ASHEI POLLEN [Suspect]
     Active Substance: JUNIPERUS ASHEI POLLEN
     Indication: Product used for unknown indication
     Dosage: UNK
     Dates: start: 20220214
  3. FRAXINUS AMERICANA POLLEN [Suspect]
     Active Substance: FRAXINUS AMERICANA POLLEN
     Indication: Product used for unknown indication
     Dosage: UNK
     Dates: start: 20220214
  4. JUGLANS NIGRA POLLEN [Suspect]
     Active Substance: JUGLANS NIGRA POLLEN
     Indication: Product used for unknown indication
     Dosage: UNK
     Dates: start: 20220214
  5. BETULA NIGRA POLLEN [Suspect]
     Active Substance: BETULA NIGRA POLLEN
     Indication: Product used for unknown indication
     Dosage: UNK
     Dates: start: 20220214
  6. PLATANUS OCCIDENTALIS POLLEN [Suspect]
     Active Substance: PLATANUS OCCIDENTALIS POLLEN
     Indication: Product used for unknown indication
     Dosage: UNK
     Dates: start: 20220214
  7. RUMEX ACETOSELLA POLLEN [Suspect]
     Active Substance: RUMEX ACETOSELLA POLLEN
     Indication: Product used for unknown indication
     Dosage: UNK
     Dates: start: 20220214
  8. FELIS CATUS HAIR [Suspect]
     Active Substance: FELIS CATUS HAIR
     Indication: Product used for unknown indication
     Dosage: UNK
     Dates: start: 20220214
  9. AMBROSIA ARTEMISIIFOLIA POLLEN [Suspect]
     Active Substance: AMBROSIA ARTEMISIIFOLIA POLLEN
     Indication: Product used for unknown indication
     Dosage: UNK
     Dates: start: 20220214
  10. PHLEUM PRATENSE POLLEN [Suspect]
     Active Substance: PHLEUM PRATENSE POLLEN
     Indication: Product used for unknown indication
     Dosage: UNK
     Dates: start: 20220214
  11. CYNODON DACTYLON POLLEN [Suspect]
     Active Substance: CYNODON DACTYLON POLLEN
     Indication: Product used for unknown indication
     Dosage: UNK
     Dates: start: 20220214
  12. SORGHUM HALEPENSE POLLEN [Suspect]
     Active Substance: SORGHUM HALEPENSE POLLEN
     Indication: Product used for unknown indication
     Dosage: UNK
     Dates: start: 20220214
  13. POPULUS DELTOIDES POLLEN [Suspect]
     Active Substance: POPULUS DELTOIDES POLLEN
     Indication: Product used for unknown indication
     Dosage: UNK
     Dates: start: 20220214
  14. ACER NEGUNDO POLLEN [Suspect]
     Active Substance: ACER NEGUNDO POLLEN
     Indication: Product used for unknown indication
     Dosage: UNK
     Dates: start: 20220214
  15. PINUS STROBUS POLLEN [Suspect]
     Active Substance: PINUS STROBUS POLLEN
     Indication: Product used for unknown indication
     Dosage: UNK
     Dates: start: 20220214
  16. XANTHIUM STRUMARIUM POLLEN [Suspect]
     Active Substance: XANTHIUM STRUMARIUM POLLEN
     Indication: Product used for unknown indication
     Dosage: UNK
     Dates: start: 20220214
  17. DERMATOPHAGOIDES PTERONYSSINUS [Suspect]
     Active Substance: DERMATOPHAGOIDES PTERONYSSINUS
     Indication: Product used for unknown indication
     Dosage: UNK
     Dates: start: 20220214
  18. EPICOCCUM NIGRUM [Suspect]
     Active Substance: EPICOCCUM NIGRUM
     Indication: Product used for unknown indication
     Dosage: UNK
     Dates: start: 20220214
  19. HELMINTHOSPORIUM SOLANI [Suspect]
     Active Substance: HELMINTHOSPORIUM SOLANI
     Indication: Product used for unknown indication
     Dosage: UNK
     Dates: start: 20220214
  20. ALTERNARIA ALTERNATA [Suspect]
     Active Substance: ALTERNARIA ALTERNATA
     Indication: Product used for unknown indication
     Dosage: UNK
     Dates: start: 20220214
  21. FLONASE ALLERGY RELIEF [Concomitant]
     Active Substance: FLUTICASONE PROPIONATE
  22. XYZAL [Concomitant]
     Active Substance: LEVOCETIRIZINE DIHYDROCHLORIDE
  23. BENADRYL [Concomitant]
     Active Substance: DIPHENHYDRAMINE HYDROCHLORIDE
     Dosage: UNK UNK, PRN

REACTIONS (2)
  - Injection site reaction [Recovered/Resolved]
  - Injection site urticaria [Recovered/Resolved]

NARRATIVE: CASE EVENT DATE: 20220803
